FAERS Safety Report 19190674 (Version 3)
Quarter: 2021Q2

REPORT INFORMATION
  Report Type: Spontaneous
  Country: DE (occurrence: DE)
  Receive Date: 20210428
  Receipt Date: 20210630
  Transmission Date: 20210717
  Serious: Yes (Other)
  Sender: FDA-Public Use
  Company Number: DE-ASTRAZENECA-2021A357869

PATIENT
  Age: 50 Year

DRUGS (5)
  1. ALLOPURINOL. [Concomitant]
     Active Substance: ALLOPURINOL
     Route: 065
  2. CALQUENCE [Suspect]
     Active Substance: ACALABRUTINIB
     Indication: CHRONIC LYMPHOCYTIC LEUKAEMIA
     Route: 048
     Dates: start: 202012
  3. BISOPROLOL [Concomitant]
     Active Substance: BISOPROLOL
     Route: 065
  4. COTRIM FROTE [Concomitant]
     Dosage: MONDAY? WEDNESDAY ? FRIDAY
     Route: 065
  5. ACYCLOVIR. [Concomitant]
     Active Substance: ACYCLOVIR
     Route: 065

REACTIONS (1)
  - Leukocytosis [Unknown]

NARRATIVE: CASE EVENT DATE: 202102
